FAERS Safety Report 9125484 (Version 1)
Quarter: 2013Q1

REPORT INFORMATION
  Report Type: Spontaneous
  Country: FR (occurrence: FR)
  Receive Date: 20130227
  Receipt Date: 20130227
  Transmission Date: 20140127
  Serious: Yes (Life-Threatening)
  Sender: FDA-Public Use
  Company Number: FR-GLAXOSMITHKLINE-B0869429A

PATIENT
  Age: 73 Year
  Sex: Female

DRUGS (10)
  1. AMOXICILLIN [Suspect]
     Indication: MENINGITIS ASEPTIC
     Dosage: 5G FOUR TIMES PER DAY
     Route: 042
     Dates: start: 20130125, end: 20130128
  2. ZOVIRAX [Suspect]
     Indication: MENINGITIS ASEPTIC
     Dosage: 10MGK THREE TIMES PER DAY
     Route: 042
     Dates: start: 20130125, end: 20130129
  3. CEFOTAXIME [Suspect]
     Indication: MENINGITIS ASEPTIC
     Dosage: 5G FOUR TIMES PER DAY
     Route: 042
     Dates: start: 20130125, end: 20130128
  4. AMOXICILLIN [Concomitant]
     Indication: OROPHARYNGEAL PAIN
     Route: 048
     Dates: start: 20130123, end: 20130124
  5. HYDROCORTISONE [Concomitant]
     Dates: start: 20130123
  6. LEVOTHYROX [Concomitant]
     Indication: HYPOTHYROIDISM
     Dosage: 125MCG PER DAY
     Route: 048
  7. LIPUR [Concomitant]
     Dosage: 450MG PER DAY
  8. GAVISCON [Concomitant]
     Dosage: 2UNIT THREE TIMES PER DAY
  9. BISOPROLOL [Concomitant]
     Dosage: 2.5MG PER DAY
  10. GENTAMICINE [Concomitant]
     Indication: MENINGITIS ASEPTIC
     Route: 065
     Dates: start: 20120125, end: 20120125

REACTIONS (4)
  - Anaphylactic shock [Recovered/Resolved]
  - Rash [Recovered/Resolved]
  - Hypotension [Recovered/Resolved]
  - Laryngeal oedema [Recovered/Resolved]
